FAERS Safety Report 7574931-8 (Version None)
Quarter: 2011Q2

REPORT INFORMATION
  Report Type: 
  Country: None (occurrence: None)
  Receive Date: 20110627
  Receipt Date: 20110523
  Transmission Date: 20111010
  Serious: No
  Sender: FDA-Public Use
  Company Number: US-BAYER-2011-045462

PATIENT
  Age: 34 Year
  Sex: Male
  Weight: 91 kg

DRUGS (4)
  1. LISINOPRIL [Concomitant]
  2. AMARYL [Concomitant]
  3. ALEVE (CAPLET) [Suspect]
     Dosage: 1 DF, BID
     Route: 048
     Dates: start: 20110101
  4. METFORMIN HCL [Concomitant]

REACTIONS (1)
  - NO ADVERSE EVENT [None]
